FAERS Safety Report 7243865-0 (Version None)
Quarter: 2011Q1

REPORT INFORMATION
  Report Type: 
  Country: None (occurrence: None)
  Receive Date: 20110119
  Receipt Date: 20110119
  Transmission Date: 20110831
  Serious: Yes (Hospitalization)
  Sender: FDA-Public Use
  Company Number: None

PATIENT
  Age: 84 Year
  Sex: Male
  Weight: 69.8 kg

DRUGS (2)
  1. DABIGATRAN 150MG BOERINGER INGELHEIM [Suspect]
     Indication: ATRIAL FIBRILLATION
     Dosage: 150MG BID PO
     Route: 048
  2. WARFARIN SODIUM [Concomitant]

REACTIONS (2)
  - DYSPEPSIA [None]
  - CHEST PAIN [None]
